FAERS Safety Report 18821652 (Version 3)
Quarter: 2021Q1

REPORT INFORMATION
  Report Type: Spontaneous
  Country: BE (occurrence: BE)
  Receive Date: 20210202
  Receipt Date: 20210319
  Transmission Date: 20210419
  Serious: Yes (Hospitalization, Other)
  Sender: FDA-Public Use
  Company Number: BE-VERTEX PHARMACEUTICALS-2021-001630

PATIENT
  Age: 12 Year
  Sex: Male

DRUGS (7)
  1. PULMOZYME [Concomitant]
     Active Substance: DORNASE ALFA
     Dosage: 1 DOSAGE FORM, QD
  2. ORKAMBI [Suspect]
     Active Substance: IVACAFTOR\LUMACAFTOR
     Indication: CYSTIC FIBROSIS
     Dosage: 2 DOSAGE FORM, BID
     Route: 048
     Dates: start: 20200411, end: 20210129
  3. CREON [Concomitant]
     Active Substance: PANCRELIPASE AMYLASE\PANCRELIPASE LIPASE\PANCRELIPASE PROTEASE
     Dosage: 21000 INTERNATIONAL UNIT, QD (PLUS MINUS 3 CAPSULES)
  4. VITAMIN A [RETINOL] [Concomitant]
     Active Substance: RETINOL
     Dosage: 1 DOSAGE FORM, QD
  5. VITAMIN D [COLECALCIFEROL] [Concomitant]
     Active Substance: CHOLECALCIFEROL
     Dosage: 1 DOSAGE FORM, QD
  6. NASONEX [Concomitant]
     Active Substance: MOMETASONE FUROATE
     Dosage: 1 DOSAGE FORM, QD
  7. VITAMIN E [Concomitant]
     Active Substance: .ALPHA.-TOCOPHEROL
     Dosage: 1 DOSAGE FORM, QD

REACTIONS (1)
  - B-cell type acute leukaemia [Not Recovered/Not Resolved]

NARRATIVE: CASE EVENT DATE: 20210125
